FAERS Safety Report 10034023 (Version 1)
Quarter: 2014Q1

REPORT INFORMATION
  Report Type: Spontaneous
  Country: US (occurrence: None)
  Receive Date: 20140320
  Receipt Date: 20140320
  Transmission Date: 20141002
  Serious: Yes (Life-Threatening, Other)
  Sender: FDA-Public Use
  Company Number: 2014030026

PATIENT
  Age: 67 Year
  Sex: Female

DRUGS (11)
  1. DYMISTA [Suspect]
     Indication: RHINITIS ALLERGIC
     Dosage: 4 DOSAGE FORMS (2 DOSAGE FORMS, 2 IN 1 D), IN
     Route: 055
     Dates: start: 20131227, end: 20131231
  2. DYMISTA [Suspect]
     Indication: NASAL CONGESTION
     Dosage: 4 DOSAGE FORMS (2 DOSAGE FORMS, 2 IN 1 D), IN
     Route: 055
     Dates: start: 20131227, end: 20131231
  3. DUACT [Suspect]
     Indication: RHINITIS ALLERGIC
     Dosage: 1 DOSAGE FORMS, 1-2 TIMES A DAY), ORAL
     Route: 048
     Dates: start: 20131227, end: 20140102
  4. FLIXOTIDE DISKUS [Suspect]
     Indication: ASTHMA
     Dosage: 2 DOSAGE FORMS ( 1 DOSAGE FORMS,  2 IN 1 D),  RESPIRATORY (INHALATION)
     Route: 055
     Dates: start: 2008, end: 20140101
  5. CALCICHEW D3 FORTE LEMON (CALCIUM CARBONATE, COLECALCIFEROL) [Concomitant]
  6. DEVISOL NEUTRAL D3 (CALCIFEDIOL) [Concomitant]
  7. RELATABS (LACTOBACILLUS REUTERI) [Concomitant]
  8. VENTOLINE DISKUS (SALBUTAMOL SULFATE) [Concomitant]
  9. NASO-RATIOPHARM (XYLOMETAZOLINE HYDROCHLORIDE) [Concomitant]
  10. SERETIDE DISKUS (SALMETEROL XINAFOATE, FLUTICASONE PROPIONATE ) [Concomitant]
  11. DESLORATADINE ACTAVIS (DESLORATADINE) [Concomitant]

REACTIONS (4)
  - Headache [None]
  - Dizziness [None]
  - Ill-defined disorder [None]
  - Chest discomfort [None]
